FAERS Safety Report 20088079 (Version 1)
Quarter: 2021Q4

REPORT INFORMATION
  Report Type: Spontaneous
  Country: US (occurrence: US)
  Receive Date: 20211118
  Receipt Date: 20211118
  Transmission Date: 20220303
  Serious: No
  Sender: FDA-Public Use
  Company Number: US-GILEAD-2021-0556090

PATIENT
  Sex: Female

DRUGS (6)
  1. SOFOSBUVIR\VELPATASVIR [Suspect]
     Active Substance: SOFOSBUVIR\VELPATASVIR
     Indication: Chronic hepatitis C
     Dosage: 1 DOSAGE FORM, QD
     Route: 048
  2. CEFIXIME [Concomitant]
     Active Substance: CEFIXIME
  3. HYDROXYZINE HYDROCHLORIDE [Concomitant]
     Active Substance: HYDROXYZINE HYDROCHLORIDE
  4. LOSARTAN POTASSIUM [Concomitant]
     Active Substance: LOSARTAN POTASSIUM
  5. GABAPENTIN [Concomitant]
     Active Substance: GABAPENTIN
  6. VITAMINS [Concomitant]
     Active Substance: VITAMINS

REACTIONS (2)
  - Rash [Recovered/Resolved]
  - Skin exfoliation [Recovered/Resolved]
